FAERS Safety Report 7154138-9 (Version None)
Quarter: 2010Q4

REPORT INFORMATION
  Report Type: 
  Country: None (occurrence: None)
  Receive Date: 20101124
  Receipt Date: 20101109
  Transmission Date: 20110411
  Serious: Yes (Hospitalization, Other)
  Sender: FDA-Public Use
  Company Number: AUR-APL-2010-02241

PATIENT
  Age: 9 Year
  Sex: Female
  Weight: 34.8 kg

DRUGS (16)
  1. ONDANSETRON [Suspect]
     Indication: NAUSEA
     Dosage: 6MG, IV
     Route: 042
     Dates: start: 20100217, end: 20100222
  2. VINCRISTINE SULFATE [Suspect]
     Indication: NEOPLASM MALIGNANT
     Dosage: 1.9MG, 1 DOSE, IV
     Route: 042
     Dates: start: 20100217, end: 20100217
  3. DOXORUBICIN HCL [Suspect]
     Indication: NEOPLASM MALIGNANT
     Dosage: 38MG, DAILY, IV
     Route: 042
     Dates: start: 20100217, end: 20100218
  4. APREPITANT  125 MG [Suspect]
     Indication: PROPHYLAXIS
     Dosage: 89MG, ORAL
     Route: 048
     Dates: start: 20100217, end: 20100217
  5. COSMEGEN [Suspect]
     Indication: NEOPLASM MALIGNANT
     Dosage: 1.9MG, 1 DOSE, IV
     Route: 042
     Dates: start: 20100217, end: 20100217
  6. DEXAMETHASONE [Concomitant]
  7. RANITIDINE [Concomitant]
  8. FLUCONAZOLE [Concomitant]
  9. SULFAMETHOXAZOLE AND TRIMETHOPRIM [Concomitant]
  10. IFOSFAMIDE [Concomitant]
  11. OMEPRAZOLE [Concomitant]
  12. GENTAMICIN SULFATE [Concomitant]
  13. FILGRASTIM [Concomitant]
  14. PENICILLIN G SODIUM [Concomitant]
  15. LANSOPRAZOLE [Concomitant]
  16. LACTITOL [Concomitant]

REACTIONS (11)
  - C-REACTIVE PROTEIN INCREASED [None]
  - DECREASED APPETITE [None]
  - DEVICE EXPULSION [None]
  - FATIGUE [None]
  - FEBRILE NEUTROPENIA [None]
  - FEEDING DISORDER [None]
  - LEUKOPENIA [None]
  - NAUSEA [None]
  - ORAL PAIN [None]
  - PALLOR [None]
  - VOMITING [None]
